FAERS Safety Report 5640514-X (Version None)
Quarter: 2008Q1

REPORT INFORMATION
  Report Type: 
  Country: None (occurrence: None)
  Receive Date: 20080227
  Receipt Date: 20080219
  Transmission Date: 20080703
  Serious: Yes (Other)
  Sender: FDA-Public Use
  Company Number: US-WYE-H02733008

PATIENT

DRUGS (1)
  1. RAPAMUNE [Suspect]
     Indication: WEGENER'S GRANULOMATOSIS
     Dosage: MAXIMUM DOSES OF 2 TO 4 MG/DAILY
     Route: 048

REACTIONS (1)
  - MALIGNANT FIBROUS HISTIOCYTOMA [None]
